FAERS Safety Report 7277259-9 (Version None)
Quarter: 2011Q1

REPORT INFORMATION
  Report Type: 
  Country: None (occurrence: None)
  Receive Date: 20110202
  Receipt Date: 20110202
  Transmission Date: 20110831
  Serious: Yes (Hospitalization, Other)
  Sender: FDA-Public Use
  Company Number: None

PATIENT
  Age: 28 Year
  Sex: Male

DRUGS (1)
  1. HALOPERIDOL [Suspect]
     Dosage: 1 MG PO QHS
     Route: 048
     Dates: end: 20101006

REACTIONS (2)
  - MUSCLE TIGHTNESS [None]
  - DYSPNOEA [None]
